FAERS Safety Report 11544135 (Version 2)
Quarter: 2015Q4

REPORT INFORMATION
  Report Type: Spontaneous
  Country: PL (occurrence: PL)
  Receive Date: 20150924
  Receipt Date: 20151012
  Transmission Date: 20160304
  Serious: Yes (Hospitalization)
  Sender: FDA-Public Use
  Company Number: PL-INDICUS PHARMA-000247

PATIENT
  Age: 77 Year
  Sex: Female

DRUGS (3)
  1. ACETYLSALICYLIC ACID [Concomitant]
     Active Substance: ASPIRIN
  2. METFORMIN [Suspect]
     Active Substance: METFORMIN HYDROCHLORIDE
     Indication: TYPE 2 DIABETES MELLITUS
  3. INSULIN [Concomitant]
     Active Substance: INSULIN NOS

REACTIONS (5)
  - Intentional product misuse [Recovering/Resolving]
  - Chronic kidney disease [Recovering/Resolving]
  - Condition aggravated [Recovering/Resolving]
  - Hypovolaemia [Recovering/Resolving]
  - Lactic acidosis [Recovering/Resolving]
